FAERS Safety Report 7865587-5 (Version None)
Quarter: 2011Q4

REPORT INFORMATION
  Report Type: 
  Country: None (occurrence: None)
  Receive Date: 20111028
  Receipt Date: 20110120
  Transmission Date: 20120403
  Serious: No
  Sender: FDA-Public Use
  Company Number: US-GLAXOSMITHKLINE-A0907713A

PATIENT
  Age: 82 Year
  Sex: Male

DRUGS (6)
  1. PRAVASTATIN [Concomitant]
  2. METOPROLOL TARTRATE [Concomitant]
  3. SYNTHROID [Concomitant]
  4. ADVAIR DISKUS 100/50 [Suspect]
     Indication: EMPHYSEMA
     Dosage: 1PUFF TWICE PER DAY
     Route: 055
     Dates: start: 20090101
  5. ALEVE [Concomitant]
  6. EYE DROPS [Concomitant]

REACTIONS (3)
  - DRY MOUTH [None]
  - SWOLLEN TONGUE [None]
  - DYSPHAGIA [None]
